FAERS Safety Report 18439716 (Version 1)
Quarter: 2020Q4

REPORT INFORMATION
  Report Type: Spontaneous
  Country: GB (occurrence: GB)
  Receive Date: 20201029
  Receipt Date: 20201029
  Transmission Date: 20210114
  Serious: Yes (Hospitalization, Other)
  Sender: FDA-Public Use
  Company Number: GB-LUPIN PHARMACEUTICALS INC.-2020-07894

PATIENT
  Age: 66 Year
  Sex: Female

DRUGS (4)
  1. TRIAMCINOLONE [Suspect]
     Active Substance: TRIAMCINOLONE
     Indication: OSTEOARTHRITIS
     Dosage: 40 MILLIGRAM UNK (ADMINISTERED INTRA-ARTICULAR INJECTION OF 40 MG TRIAMCINOLONE DILUTED WITH 6 ML OF
     Route: 014
  2. CHLORHEXIDINE [Concomitant]
     Active Substance: CHLORHEXIDINE
     Indication: DRUG THERAPY
     Dosage: COPIOUS AMOUNTS
     Route: 065
  3. LIDOCAINE. [Concomitant]
     Active Substance: LIDOCAINE
     Indication: PRODUCT USED FOR UNKNOWN INDICATION
     Dosage: 5 MILLILITER UNK
     Route: 065
  4. BUPIVACAINE. [Concomitant]
     Active Substance: BUPIVACAINE
     Indication: VEHICLE SOLUTION USE
     Dosage: 6 MILLILITER UNK (ADMINISTERED INTRA-ARTICULAR INJECTION OF 40 MG TRIAMCINOLONE DILUTED WITH 6 ML OF
     Route: 014

REACTIONS (4)
  - Sepsis [Recovering/Resolving]
  - Arthritis fungal [Recovering/Resolving]
  - Candida infection [Recovering/Resolving]
  - Femur fracture [Unknown]
